FAERS Safety Report 12976437 (Version 1)
Quarter: 2016Q4

REPORT INFORMATION
  Report Type: Spontaneous
  Country: US (occurrence: US)
  Receive Date: 20161127
  Receipt Date: 20161127
  Transmission Date: 20170207
  Serious: No
  Sender: FDA-Public Use
  Company Number: US-B.I. PHARMACEUTICALS,INC./RIDGEFIELD-2016-BI-079296

PATIENT
  Age: 63 Year
  Sex: Female

DRUGS (18)
  1. VICTOZA [Concomitant]
     Active Substance: LIRAGLUTIDE
     Indication: TYPE 2 DIABETES MELLITUS
     Dosage: ONCE WITH EVENING MEAL;  FORM STRENGTH: 1.8MG
     Route: 058
  2. GLYBURIDE. [Concomitant]
     Active Substance: GLYBURIDE
     Indication: TYPE 2 DIABETES MELLITUS
     Dosage: 2 PILLS BID;  FORM STRENGTH: 5MG
     Route: 048
  3. SYNTHROID [Concomitant]
     Active Substance: LEVOTHYROXINE SODIUM
     Indication: THYROID DISORDER
     Dosage: QD;  FORM STRENGTH: 50MCG
     Route: 048
  4. BENADRYL [Concomitant]
     Active Substance: DIPHENHYDRAMINE HYDROCHLORIDE
     Indication: HYPERSENSITIVITY
     Dosage: 1-2 TABLETS AS NEEDED;  FORM STRENGTH: 25MG
     Route: 048
  5. ALEVE [Concomitant]
     Active Substance: NAPROXEN SODIUM
     Indication: ARTHRALGIA
     Dosage: AS NEEDED;
     Route: 048
  6. PREVACID [Concomitant]
     Active Substance: LANSOPRAZOLE
     Indication: GASTROOESOPHAGEAL REFLUX DISEASE
     Dosage: BID;  FORM STRENGTH: 30MG
     Route: 048
     Dates: start: 2009
  7. LEVEMIR [Concomitant]
     Active Substance: INSULIN DETEMIR
     Indication: TYPE 2 DIABETES MELLITUS
     Dosage: QD;  FORM STRENGTH: 10UNITS
     Route: 058
  8. TEGRETOL [Concomitant]
     Active Substance: CARBAMAZEPINE
     Indication: PAIN IN EXTREMITY
     Dosage: 1 IN THE MORNING??1 AT DINNER??2 AT BEDTIME;  FORM STRENGTH: 200MG
     Route: 048
  9. VITAMIN B12 [Concomitant]
     Active Substance: CYANOCOBALAMIN
     Indication: PRODUCT USED FOR UNKNOWN INDICATION
     Dosage: QD;
     Route: 048
  10. JARDIANCE [Suspect]
     Active Substance: EMPAGLIFLOZIN
     Dosage: HALF TABLET IN THE MORNING;  FORM STRENGTH: 25 MG; FORMULATION: TABLET? ADMINISTRATION CORRECT? YES
     Route: 048
     Dates: start: 201609
  11. FLONASE [Concomitant]
     Active Substance: FLUTICASONE PROPIONATE
     Indication: HYPERSENSITIVITY
     Dosage: 2 SQUIRTS IN EACH NOSTRIL QD;
     Route: 045
  12. HUMULIN INSULIN [Concomitant]
     Active Substance: INSULIN HUMAN
     Indication: TYPE 2 DIABETES MELLITUS
     Dosage: AS NEEDED AS PER SLIDING SCALE;
     Route: 058
  13. JARDIANCE [Suspect]
     Active Substance: EMPAGLIFLOZIN
     Indication: TYPE 2 DIABETES MELLITUS
     Dosage: HALF TABLET IN THE MORNING (12.5MG);  FORM STRENGTH: 25 MG; FORMULATION: TABLET? ADMINISTRATION CORR
     Route: 048
     Dates: start: 20160721, end: 201608
  14. NEURONTIN [Concomitant]
     Active Substance: GABAPENTIN
     Indication: ARTHRALGIA
     Dosage: 1 IN MORNING?1 AT DINNER?2 AT BEDTIME;  FORM STRENGTH: 400MG
     Route: 048
  15. ATIVAN [Concomitant]
     Active Substance: LORAZEPAM
     Indication: BIPOLAR DISORDER
     Dosage: ONE AT BEDTIME;  FORM STRENGTH: 0.5MG
     Route: 048
  16. VITAMIN D3 [Concomitant]
     Active Substance: CHOLECALCIFEROL
     Indication: VITAMIN D DECREASED
     Dosage: ONE PILL QOD;  FORM STRENGTH: 1000UNITS
     Route: 048
  17. JARDIANCE [Suspect]
     Active Substance: EMPAGLIFLOZIN
     Dosage: HALF IN MORNING AND HALF IN EVENING (12.5MG EACH DOSE);  FORM STRENGTH: 25 MG; FORMULATION: TABLET
     Route: 048
     Dates: start: 201608, end: 201609
  18. ALBUTEROL INHALER [Concomitant]
     Active Substance: ALBUTEROL
     Indication: ASTHMA
     Dosage: ONE INHALATION AS NEEDED;
     Route: 055

REACTIONS (4)
  - Faecaloma [Recovered/Resolved]
  - Vaginal haemorrhage [Not Recovered/Not Resolved]
  - Nephrolithiasis [Unknown]
  - Rectal haemorrhage [Recovered/Resolved]

NARRATIVE: CASE EVENT DATE: 201607
